FAERS Safety Report 4982285-6 (Version None)
Quarter: 2006Q1

REPORT INFORMATION
  Report Type: 
  Country: None (occurrence: None)
  Receive Date: 20060227
  Receipt Date: 20050324
  Transmission Date: 20060701
  Serious: Yes (Other)
  Sender: FDA-Public Use
  Company Number: WAES 0412USA01105

PATIENT
  Age: 60 Year
  Sex: Male

DRUGS (19)
  1. ZOCOR [Suspect]
     Indication: HYPERCHOLESTEROLAEMIA
     Dosage: 20 MG/DAILY/PO
     Route: 048
     Dates: start: 20031001, end: 20031101
  2. ANDROGEL [Concomitant]
  3. CLARINEX [Concomitant]
  4. DEPAKOTE [Concomitant]
  5. DIOVAN [Concomitant]
  6. FLONASE [Concomitant]
  7. FOSAMAX [Concomitant]
  8. LANTUS [Concomitant]
  9. NOVERIL [Concomitant]
  10. NOVOLOG [Concomitant]
  11. SINGULAIR [Concomitant]
  12. ALBUTEROL SULFATE AUTOHALER [Concomitant]
  13. ATENOLOL [Concomitant]
  14. CYANOCOBALAMIN [Concomitant]
  15. FOLIC ACID [Concomitant]
  16. FUROSEMIDE [Concomitant]
  17. GLUCAGON [Concomitant]
  18. PREDNISONE TAB [Concomitant]
  19. VERAPAMIL [Concomitant]

REACTIONS (2)
  - ASTHENIA [None]
  - RHABDOMYOLYSIS [None]
